FAERS Safety Report 9935301 (Version 1)
Quarter: 2014Q1

REPORT INFORMATION
  Report Type: Spontaneous
  Country: GB (occurrence: GB)
  Receive Date: 20140228
  Receipt Date: 20140228
  Transmission Date: 20141002
  Serious: Yes (Disabling)
  Sender: FDA-Public Use
  Company Number: GB-ELI_LILLY_AND_COMPANY-GB201402006861

PATIENT
  Age: 72 Year
  Sex: Female
  Weight: 36.7 kg

DRUGS (7)
  1. FORSTEO [Suspect]
     Indication: OSTEOPOROSIS
     Dosage: 20 UG, UNK
     Route: 058
     Dates: start: 20131212, end: 20131212
  2. MORPHINE SULPHATE [Concomitant]
     Dosage: UNK
  3. NICORETTE                          /01033301/ [Concomitant]
     Dosage: UNK
  4. PARACETAMOL [Concomitant]
     Dosage: UNK
  5. SALBUTAMOL [Concomitant]
     Dosage: UNK
  6. TIOTROPIUM [Concomitant]
     Dosage: UNK
  7. TOLTERODINE [Concomitant]
     Dosage: UNK

REACTIONS (5)
  - Abasia [Unknown]
  - Pain [Recovered/Resolved]
  - Dizziness [Recovered/Resolved]
  - Muscle spasms [Recovered/Resolved]
  - Nausea [Recovered/Resolved]
